FAERS Safety Report 25357626 (Version 2)
Quarter: 2025Q2

REPORT INFORMATION
  Report Type: Report from Study
  Country: US (occurrence: US)
  Receive Date: 20250526
  Receipt Date: 20250630
  Transmission Date: 20250717
  Serious: Yes (Other)
  Sender: ABBVIE
  Company Number: US-ABBVIE-6291692

PATIENT
  Age: 78 Year
  Sex: Female
  Weight: 70.76 kg

DRUGS (12)
  1. SKYRIZI [Suspect]
     Active Substance: RISANKIZUMAB-RZAA
     Indication: Crohn^s disease
     Route: 041
     Dates: start: 20250423, end: 20250618
  2. SKYRIZI [Suspect]
     Active Substance: RISANKIZUMAB-RZAA
     Indication: Crohn^s disease
     Route: 041
  3. VITAMIN D3 [Concomitant]
     Active Substance: CHOLECALCIFEROL
     Indication: Vitamin supplementation
  4. LOSARTAN [Concomitant]
     Active Substance: LOSARTAN
     Indication: Blood pressure measurement
  5. SPIRONOLACTONE [Concomitant]
     Active Substance: SPIRONOLACTONE
     Indication: Diuretic therapy
  6. FAMOTIDINE [Concomitant]
     Active Substance: FAMOTIDINE
     Indication: Gastrooesophageal reflux disease
  7. ALENDRONATE [Concomitant]
     Active Substance: ALENDRONATE SODIUM
     Indication: Bone density abnormal
  8. LORATADINE [Concomitant]
     Active Substance: LORATADINE
     Indication: Hypersensitivity
  9. DILTIAZEM [Concomitant]
     Active Substance: DILTIAZEM
     Indication: Blood pressure measurement
  10. KRILL OIL [Concomitant]
     Active Substance: DIETARY SUPPLEMENT\KRILL OIL
     Indication: Supplementation therapy
  11. DORZOLAMIDE\TIMOLOL [Concomitant]
     Active Substance: DORZOLAMIDE\TIMOLOL
     Indication: Eye disorder
     Route: 047
  12. VYZULTA [Concomitant]
     Active Substance: LATANOPROSTENE BUNOD
     Indication: Eye disorder

REACTIONS (4)
  - Scar [Recovering/Resolving]
  - Fatigue [Recovered/Resolved]
  - Fatigue [Recovered/Resolved]
  - Pain [Recovering/Resolving]

NARRATIVE: CASE EVENT DATE: 20250101
